FAERS Safety Report 18544850 (Version 2)
Quarter: 2020Q4

REPORT INFORMATION
  Report Type: Spontaneous
  Country: CH (occurrence: IN)
  Receive Date: 20201125
  Receipt Date: 20201209
  Transmission Date: 20210114
  Serious: Yes (Death, Life-Threatening, Hospitalization, Other)
  Sender: FDA-Public Use
  Company Number: IN-ASTELLAS-2020US041368

PATIENT
  Age: 70 Year
  Sex: Female

DRUGS (7)
  1. COLISTIN [Concomitant]
     Active Substance: COLISTIN
     Indication: ACINETOBACTER INFECTION
  2. TIGECYCLINE. [Concomitant]
     Active Substance: TIGECYCLINE
     Indication: PNEUMONIA KLEBSIELLA
  3. ISAVUCONAZOLE [Suspect]
     Active Substance: ISAVUCONAZOLE
     Indication: MUCORMYCOSIS
  4. COLISTIN [Concomitant]
     Active Substance: COLISTIN
     Indication: PNEUMONIA KLEBSIELLA
     Dosage: UNK UNK, UNKNOWN FREQ.
     Route: 065
     Dates: start: 20201109
  5. SODIUM CHLORIDE 0.9% [Concomitant]
     Active Substance: SODIUM CHLORIDE
     Indication: PRODUCT USED FOR UNKNOWN INDICATION
     Dosage: 0.9 %, UNKNOWN FREQ.
     Route: 065
     Dates: start: 20201111, end: 20201111
  6. ISAVUCONAZOLE [Suspect]
     Active Substance: ISAVUCONAZOLE
     Indication: ASPERGILLUS INFECTION
     Route: 042
     Dates: start: 20201111, end: 20201111
  7. TIGECYCLINE. [Concomitant]
     Active Substance: TIGECYCLINE
     Indication: ACINETOBACTER INFECTION
     Dosage: UNK UNK, UNKNOWN FREQ.
     Route: 065
     Dates: start: 20201106

REACTIONS (5)
  - Multiple organ dysfunction syndrome [Fatal]
  - Shock [Fatal]
  - Anaphylactic reaction [Fatal]
  - Metabolic acidosis [Fatal]
  - Sepsis [Fatal]

NARRATIVE: CASE EVENT DATE: 202011
